FAERS Safety Report 9155336 (Version 1)
Quarter: 2013Q1

REPORT INFORMATION
  Report Type: Spontaneous
  Country: US (occurrence: US)
  Receive Date: 20130311
  Receipt Date: 20130311
  Transmission Date: 20140127
  Serious: No
  Sender: FDA-Public Use
  Company Number: US-009507513-1303USA004845

PATIENT
  Sex: Male

DRUGS (1)
  1. AFRIN [Suspect]
     Indication: PRODUCT USED FOR UNKNOWN INDICATION
     Dosage: 2 DF, ONCE
     Route: 045
     Dates: start: 20130223

REACTIONS (2)
  - Hypoaesthesia [Unknown]
  - Unevaluable event [Unknown]
